FAERS Safety Report 10952154 (Version 6)
Quarter: 2015Q2

REPORT INFORMATION
  Report Type: Spontaneous
  Country: US (occurrence: US)
  Receive Date: 20150325
  Receipt Date: 20150624
  Transmission Date: 20150821
  Serious: Yes (Other)
  Sender: FDA-Public Use
  Company Number: US-AUROBINDO-AUR-APL-2015-02519

PATIENT
  Age: 54 Year
  Sex: Male
  Weight: 72.56 kg

DRUGS (2)
  1. GABAPENTIN CAPSULES 300 MG [Suspect]
     Active Substance: GABAPENTIN
     Indication: NEUROPATHY PERIPHERAL
  2. GABAPENTIN CAPSULES 300 MG [Suspect]
     Active Substance: GABAPENTIN
     Indication: MENTAL DISORDER
     Dosage: 300 MG (ONE CAPSULE IN THE MORNING AND AFTERNOON, THREE CAPSULES IN THE EVENING)
     Route: 048
     Dates: start: 201403, end: 201411

REACTIONS (5)
  - Panic attack [Recovered/Resolved]
  - Product quality issue [Recovered/Resolved]
  - Depression [Recovered/Resolved]
  - Malaise [Recovered/Resolved]
  - Drug ineffective [Recovered/Resolved]

NARRATIVE: CASE EVENT DATE: 2014
